FAERS Safety Report 15926702 (Version 2)
Quarter: 2019Q1

REPORT INFORMATION
  Report Type: Spontaneous
  Country: US (occurrence: US)
  Receive Date: 20190205
  Receipt Date: 20190219
  Transmission Date: 20190417
  Serious: No
  Sender: FDA-Public Use
  Company Number: US-ALLERGAN-1848083US

PATIENT
  Age: 48 Year
  Sex: Female

DRUGS (3)
  1. JUVEDERM [Suspect]
     Active Substance: HYALURONIC ACID
     Indication: DERMAL FILLER INJECTION
     Dosage: 1 SYRINGE, SINGLE
     Route: 058
     Dates: start: 20180917, end: 20180917
  2. BOTOX [Suspect]
     Active Substance: ONABOTULINUMTOXINA
     Indication: SKIN WRINKLING
     Dosage: 60 UNITS, SINGLE
     Route: 030
     Dates: start: 20180917, end: 20180917
  3. JUVEDERM [Suspect]
     Active Substance: HYALURONIC ACID
     Indication: DERMAL FILLER INJECTION
     Dosage: 1 SYRINGE, SINGLE
     Route: 058
     Dates: start: 20180917, end: 20180917

REACTIONS (9)
  - Skin exfoliation [Unknown]
  - Injection site papule [Not Recovered/Not Resolved]
  - Staphylococcal skin infection [Not Recovered/Not Resolved]
  - Facial pain [Unknown]
  - Rash papular [Unknown]
  - Off label use [Unknown]
  - Erythema [Not Recovered/Not Resolved]
  - Eyelid function disorder [Recovering/Resolving]
  - Burning sensation [Recovering/Resolving]

NARRATIVE: CASE EVENT DATE: 20180919
